FAERS Safety Report 7241557-5 (Version None)
Quarter: 2011Q1

REPORT INFORMATION
  Report Type: 
  Country: None (occurrence: None)
  Receive Date: 20110124
  Receipt Date: 20110118
  Transmission Date: 20110831
  Serious: Yes (Other)
  Sender: FDA-Public Use
  Company Number: ES-MERCK-1101ESP00024

PATIENT
  Age: 76 Year
  Sex: Female

DRUGS (5)
  1. ALPRAZOLAM [Concomitant]
     Route: 048
     Dates: start: 20090617
  2. CITALOPRAM HYDROBROMIDE [Concomitant]
     Route: 048
     Dates: start: 20041201
  3. SINEMET [Suspect]
     Indication: PARKINSON'S DISEASE
     Route: 048
     Dates: start: 20100317
  4. DONEEZIL HYDROCHLORIDE [Suspect]
     Indication: MEMORY IMPAIRMENT
     Route: 048
     Dates: start: 20100831, end: 20100906
  5. CARBIDOPA AND ENTACAPONE AND LEVODOPA [Suspect]
     Indication: PARKINSON'S DISEASE
     Route: 048
     Dates: start: 20100831

REACTIONS (4)
  - AGITATION [None]
  - TEMPERATURE INTOLERANCE [None]
  - NERVOUSNESS [None]
  - ARTHRALGIA [None]
